FAERS Safety Report 19798824 (Version 1)
Quarter: 2021Q3

REPORT INFORMATION
  Report Type: Spontaneous
  Country: CN (occurrence: CN)
  Receive Date: 20210907
  Receipt Date: 20210907
  Transmission Date: 20211014
  Serious: Yes (Hospitalization, Other)
  Sender: FDA-Public Use
  Company Number: CN-PFIZER INC-202101098712

PATIENT
  Age: 37 Year
  Sex: Female
  Weight: 52 kg

DRUGS (6)
  1. EPIDAZA [Suspect]
     Active Substance: TUCIDINOSTAT
     Indication: SYMPTOMATIC TREATMENT
     Dosage: 30 MG, TWICE EVERY 7DAYS
     Route: 048
     Dates: start: 20210509, end: 20210809
  2. AROMASIN [Suspect]
     Active Substance: EXEMESTANE
     Dosage: 25 MG, 1X/DAY
     Route: 048
  3. BEI YI [LEUPRORELIN ACETATE] [Suspect]
     Active Substance: LEUPROLIDE ACETATE
     Dosage: 3.75 MG, ONCE EVERY 30 DAYS
     Route: 058
  4. BEI YI [LEUPRORELIN ACETATE] [Suspect]
     Active Substance: LEUPROLIDE ACETATE
     Indication: SYMPTOMATIC TREATMENT
     Dosage: 3.75 MG, ONCE EVERY 30 DAYS
     Route: 058
     Dates: start: 20210509, end: 20210809
  5. EPIDAZA [Suspect]
     Active Substance: TUCIDINOSTAT
     Dosage: 30 MG, TWICE EVERY 7DAYS
     Route: 048
  6. AROMASIN [Suspect]
     Active Substance: EXEMESTANE
     Indication: SYMPTOMATIC TREATMENT
     Dosage: 25 MG, 1X/DAY
     Route: 048
     Dates: start: 20210412, end: 20210809

REACTIONS (2)
  - Granulocytopenia [Recovering/Resolving]
  - White blood cell count decreased [Recovering/Resolving]

NARRATIVE: CASE EVENT DATE: 20210710
